FAERS Safety Report 10506111 (Version 2)
Quarter: 2015Q1

REPORT INFORMATION
  Report Type: Spontaneous
  Country: US (occurrence: US)
  Receive Date: 20141009
  Receipt Date: 20150324
  Transmission Date: 20150720
  Serious: Yes (Hospitalization, Other)
  Sender: FDA-Public Use
  Company Number: US-AMGEN-USASP2014076258

PATIENT
  Age: 81 Year
  Sex: Male

DRUGS (1)
  1. PROLIA [Suspect]
     Active Substance: DENOSUMAB
     Indication: OSTEOPOROSIS
     Dosage: UNK
     Route: 065
     Dates: start: 201408

REACTIONS (19)
  - Ear pain [Unknown]
  - Cardiac disorder [Unknown]
  - Influenza like illness [Unknown]
  - Upper limb fracture [Unknown]
  - Fracture [Unknown]
  - Cellulitis [Unknown]
  - Laceration [Unknown]
  - Fall [Unknown]
  - Dyspnoea [Unknown]
  - Arthralgia [Unknown]
  - Pelvic fracture [Unknown]
  - Neck pain [Unknown]
  - Back pain [Unknown]
  - Blister [Unknown]
  - Chest discomfort [Recovering/Resolving]
  - Blood calcium decreased [Unknown]
  - Musculoskeletal pain [Unknown]
  - Dizziness [Unknown]
  - Balance disorder [Unknown]

NARRATIVE: CASE EVENT DATE: 2014
